FAERS Safety Report 9330911 (Version 2)
Quarter: 2013Q2

REPORT INFORMATION
  Report Type: Spontaneous
  Country: GB (occurrence: GB)
  Receive Date: 20130605
  Receipt Date: 20130627
  Transmission Date: 20140414
  Serious: Yes (Disabling, Other)
  Sender: FDA-Public Use
  Company Number: GB-PFIZER INC-2013167933

PATIENT
  Age: 63 Year
  Sex: Male
  Weight: 125 kg

DRUGS (16)
  1. AMLODIPINE BESILATE [Suspect]
     Dates: start: 20130206
  2. METFORMIN [Concomitant]
     Dosage: UNK
     Route: 065
     Dates: start: 20130124
  3. ASPIRIN [Concomitant]
     Dosage: UNK
     Route: 065
     Dates: start: 20130206
  4. ATENOLOL [Concomitant]
     Dosage: UNK
     Route: 065
     Dates: start: 20130206
  5. DOXAZOSIN [Concomitant]
     Dosage: UNK
     Route: 065
     Dates: start: 20130206
  6. GABAPENTIN [Concomitant]
     Dosage: UNK
     Route: 065
     Dates: start: 20130206
  7. GLICLAZIDE [Concomitant]
     Dosage: UNK
     Route: 065
     Dates: start: 20130206, end: 20130425
  8. MIRTAZAPINE [Concomitant]
     Dosage: UNK
     Route: 065
     Dates: start: 20130206, end: 20130423
  9. PARACETAMOL [Concomitant]
     Dosage: UNK
     Route: 065
     Dates: start: 20130206, end: 20130423
  10. RAMIPRIL [Concomitant]
     Dosage: UNK
     Route: 065
     Dates: start: 20130206
  11. SIMVASTATIN [Concomitant]
     Dosage: UNK
     Route: 065
     Dates: start: 20130206
  12. THIAMINE [Concomitant]
     Dosage: UNK
     Route: 065
     Dates: start: 20130206
  13. FLUCLOXACILLIN [Concomitant]
     Dosage: UNK
     Route: 065
     Dates: start: 20130228, end: 20130311
  14. NOVOMIX [Concomitant]
     Dosage: UNK
     Route: 065
     Dates: start: 20130301, end: 20130430
  15. VITAMIN B COMPLEX [Concomitant]
     Dosage: UNK
     Route: 065
     Dates: start: 20130301, end: 20130513
  16. METRONIDAZOLE [Concomitant]
     Dosage: UNK
     Route: 065
     Dates: start: 20130304, end: 20130311

REACTIONS (3)
  - Anxiety [Recovered/Resolved]
  - Palpitations [Recovered/Resolved]
  - Panic attack [Recovered/Resolved]
